FAERS Safety Report 14448147 (Version 1)
Quarter: 2018Q1

REPORT INFORMATION
  Report Type: Spontaneous
  Country: FR (occurrence: FR)
  Receive Date: 20180126
  Receipt Date: 20180126
  Transmission Date: 20180509
  Serious: Yes (Hospitalization)
  Sender: FDA-Public Use
  Company Number: FR-SA-2018SA017484

PATIENT
  Age: 33 Year
  Sex: Male

DRUGS (4)
  1. TOBACCO [Suspect]
     Active Substance: TOBACCO LEAF
     Dosage: FORM-POWDER?30 PACKETS A YEAR
     Route: 055
  2. STILNOX [Suspect]
     Active Substance: ZOLPIDEM TARTRATE
     Route: 048
     Dates: start: 20171118, end: 20171118
  3. METHADONE [Suspect]
     Active Substance: METHADONE HYDROCHLORIDE
     Route: 042
  4. CANNABIS [Suspect]
     Active Substance: CANNABIS SATIVA SUBSP. INDICA TOP
     Route: 055

REACTIONS (5)
  - Drug abuse [Unknown]
  - Drug dependence [Unknown]
  - Cellulitis [Not Recovered/Not Resolved]
  - Abscess [Not Recovered/Not Resolved]
  - Intentional product misuse [Unknown]
